FAERS Safety Report 5902004-6 (Version None)
Quarter: 2008Q3

REPORT INFORMATION
  Report Type: 
  Country: None (occurrence: None)
  Receive Date: 20080929
  Receipt Date: 20080919
  Transmission Date: 20090109
  Serious: Yes (Hospitalization)
  Sender: FDA-Public Use
  Company Number: DE-ABBOTT-08P-062-0477308-00

PATIENT
  Sex: Female

DRUGS (2)
  1. BLOPRESS [Suspect]
     Indication: HYPERTENSION
     Route: 048
  2. SEX HORMONES AND MODULATORS OF THE GENITAL SYSTEM [Concomitant]
     Indication: HORMONE REPLACEMENT THERAPY

REACTIONS (2)
  - CEREBROVASCULAR ACCIDENT [None]
  - VASCULITIS [None]
